FAERS Safety Report 21012452 (Version 1)
Quarter: 2022Q2

REPORT INFORMATION
  Report Type: Spontaneous
  Country: US (occurrence: US)
  Receive Date: 20220627
  Receipt Date: 20220627
  Transmission Date: 20220720
  Serious: No
  Sender: FDA-Public Use
  Company Number: US-Merz Pharmaceuticals GmbH-22-01665

PATIENT
  Age: 58 Year
  Sex: Male

DRUGS (3)
  1. XEOMIN [Suspect]
     Active Substance: INCOBOTULINUMTOXINA
     Indication: Tremor
     Dates: start: 20211210, end: 20211210
  2. XEOMIN [Suspect]
     Active Substance: INCOBOTULINUMTOXINA
  3. ALBUTEROL [Concomitant]
     Active Substance: ALBUTEROL
     Indication: Chest discomfort

REACTIONS (3)
  - Pain [Unknown]
  - Therapeutic response decreased [Unknown]
  - Off label use [Unknown]

NARRATIVE: CASE EVENT DATE: 20211210
